FAERS Safety Report 25455517 (Version 1)
Quarter: 2025Q2

REPORT INFORMATION
  Report Type: Report from Study
  Country: US (occurrence: US)
  Receive Date: 20250619
  Receipt Date: 20250619
  Transmission Date: 20250716
  Serious: Yes (Hospitalization, Other)
  Sender: CSL BEHRING
  Company Number: US-BEH-2025198347

PATIENT
  Age: 37 Year
  Sex: Female
  Weight: 120.18 kg

DRUGS (2)
  1. BERINERT [Suspect]
     Active Substance: HUMAN C1-ESTERASE INHIBITOR
     Indication: Hereditary angioedema
     Route: 058
  2. BERINERT [Suspect]
     Active Substance: HUMAN C1-ESTERASE INHIBITOR
     Indication: Prophylaxis
     Dosage: 7000 IU/KG, TIW
     Route: 058

REACTIONS (8)
  - Thyroidectomy [Recovering/Resolving]
  - Oral surgery [Recovering/Resolving]
  - Pneumonitis [Recovering/Resolving]
  - Hereditary angioedema [Unknown]
  - Dyspnoea [Recovering/Resolving]
  - Insomnia [Unknown]
  - Malaise [Unknown]
  - Product dose omission in error [Unknown]

NARRATIVE: CASE EVENT DATE: 20250501
